FAERS Safety Report 13947853 (Version 2)
Quarter: 2017Q4

REPORT INFORMATION
  Report Type: Spontaneous
  Country: CO (occurrence: CO)
  Receive Date: 20170908
  Receipt Date: 20171107
  Transmission Date: 20180320
  Serious: Yes (Other)
  Sender: FDA-Public Use
  Company Number: CO-AMGEN-COLSP2017091585

PATIENT
  Age: 40 Year
  Sex: Female

DRUGS (8)
  1. ENBREL [Suspect]
     Active Substance: ETANERCEPT
     Indication: RHEUMATOID ARTHRITIS
     Dosage: 50 MG, WEEKLY
     Route: 058
     Dates: start: 201704, end: 201705
  2. ARCOXIA [Concomitant]
     Active Substance: ETORICOXIB
     Dosage: UNK
  3. MEDROL [Concomitant]
     Active Substance: METHYLPREDNISOLONE
     Dosage: UNK
  4. METHOTREXATE. [Concomitant]
     Active Substance: METHOTREXATE
     Dosage: UNK
  5. FOLIC ACID. [Concomitant]
     Active Substance: FOLIC ACID
     Dosage: UNK
  6. METHOTREXATE. [Concomitant]
     Active Substance: METHOTREXATE
     Dosage: UNK
  7. FOLIC ACID. [Concomitant]
     Active Substance: FOLIC ACID
     Dosage: UNK
  8. ENBREL [Suspect]
     Active Substance: ETANERCEPT
     Dosage: 50 MG, WEEKLY
     Route: 058
     Dates: start: 201709, end: 201710

REACTIONS (9)
  - Nasal congestion [Recovered/Resolved]
  - Dysphagia [Unknown]
  - Cough [Not Recovered/Not Resolved]
  - Abdominal discomfort [Recovered/Resolved]
  - Kidney infection [Unknown]
  - Throat irritation [Recovered/Resolved with Sequelae]
  - Influenza like illness [Recovered/Resolved with Sequelae]
  - Tonsillar disorder [Recovered/Resolved]
  - Influenza [Not Recovered/Not Resolved]

NARRATIVE: CASE EVENT DATE: 2017
